FAERS Safety Report 20208280 (Version 1)
Quarter: 2021Q4

REPORT INFORMATION
  Report Type: Spontaneous
  Country: US (occurrence: None)
  Receive Date: 20211220
  Receipt Date: 20211220
  Transmission Date: 20220303
  Serious: Yes (Other)
  Sender: FDA-Public Use
  Company Number: None

PATIENT
  Age: 54 Year
  Sex: Male
  Weight: 136.1 kg

DRUGS (3)
  1. BAMLANIVIMAB [Suspect]
     Active Substance: BAMLANIVIMAB
     Indication: COVID-19
     Dates: start: 20211217, end: 20211217
  2. ETESEVIMAB [Suspect]
     Active Substance: ETESEVIMAB
     Indication: COVID-19
     Dates: start: 20211217, end: 20211217
  3. BAMLANIVIMAB\ETESEVIMAB [Concomitant]
     Active Substance: BAMLANIVIMAB\ETESEVIMAB
     Dates: start: 20211217, end: 20211217

REACTIONS (7)
  - Mental status changes [None]
  - Seizure like phenomena [None]
  - Lethargy [None]
  - Hyperhidrosis [None]
  - Pallor [None]
  - Chest discomfort [None]
  - Somnolence [None]

NARRATIVE: CASE EVENT DATE: 20211217
